FAERS Safety Report 7460334-3 (Version None)
Quarter: 2011Q2

REPORT INFORMATION
  Report Type: 
  Country: None (occurrence: None)
  Receive Date: 20110505
  Receipt Date: 20110429
  Transmission Date: 20111010
  Serious: Yes (Hospitalization)
  Sender: FDA-Public Use
  Company Number: A0898274A

PATIENT
  Age: 58 Year
  Sex: Female

DRUGS (2)
  1. AVANDIA [Suspect]
     Indication: DIABETES MELLITUS
     Route: 048
     Dates: start: 20050501, end: 20061101
  2. AVANDAMET [Suspect]
     Indication: DIABETES MELLITUS
     Route: 048
     Dates: start: 20031214, end: 20050501

REACTIONS (3)
  - CEREBROVASCULAR ACCIDENT [None]
  - BLINDNESS [None]
  - CARDIAC FAILURE [None]
